FAERS Safety Report 9361852 (Version 1)
Quarter: 2013Q2

REPORT INFORMATION
  Report Type: Spontaneous
  Country: CA (occurrence: CA)
  Receive Date: 20130621
  Receipt Date: 20130621
  Transmission Date: 20140414
  Serious: Yes (Other)
  Sender: FDA-Public Use
  Company Number: CA-GLAXOSMITHKLINE-A1026041A

PATIENT
  Age: 63 Year
  Sex: Male
  Weight: 62.6 kg

DRUGS (10)
  1. VOTRIENT [Suspect]
     Indication: RENAL CANCER METASTATIC
     Dosage: 800MG PER DAY
     Route: 048
     Dates: start: 20130517
  2. VENTOLIN [Concomitant]
  3. SYMBICORT [Concomitant]
  4. SPIRIVA [Concomitant]
  5. ZOPICLONE [Concomitant]
  6. ATIVAN [Concomitant]
  7. PANTOPRAZOLE [Concomitant]
  8. SYNTHROID [Concomitant]
     Dosage: .037MG PER DAY
  9. RAMIPRIL [Concomitant]
     Dosage: 5MG PER DAY
  10. FERROUS SULPHATE [Concomitant]

REACTIONS (6)
  - Blood pressure increased [Not Recovered/Not Resolved]
  - Decreased appetite [Not Recovered/Not Resolved]
  - Nausea [Recovering/Resolving]
  - Weight decreased [Recovering/Resolving]
  - Myalgia [Recovering/Resolving]
  - Local swelling [Not Recovered/Not Resolved]
